FAERS Safety Report 7435494-0 (Version None)
Quarter: 2011Q2

REPORT INFORMATION
  Report Type: 
  Country: None (occurrence: None)
  Receive Date: 20110425
  Receipt Date: 20110421
  Transmission Date: 20111010
  Serious: Yes (Death)
  Sender: FDA-Public Use
  Company Number: US-ASTRAZENECA-2011SE22731

PATIENT
  Age: 19 Year
  Sex: Male

DRUGS (2)
  1. AMLODIPINE [Suspect]
     Route: 048
  2. LISINOPRIL [Suspect]
     Dosage: 30 TABLETS
     Route: 048

REACTIONS (4)
  - MULTIPLE DRUG OVERDOSE INTENTIONAL [None]
  - SUICIDE ATTEMPT [None]
  - COMPLETED SUICIDE [None]
  - HYPOTENSION [None]
